FAERS Safety Report 15272668 (Version 1)
Quarter: 2018Q3

REPORT INFORMATION
  Report Type: Spontaneous
  Country: US (occurrence: US)
  Receive Date: 20180813
  Receipt Date: 20180813
  Transmission Date: 20181010
  Serious: Yes (Hospitalization)
  Sender: FDA-Public Use
  Company Number: US-ASTRAZENECA-2018SF02286

PATIENT
  Age: 52 Year
  Sex: Male

DRUGS (2)
  1. RADIATION [Suspect]
     Active Substance: RADIATION THERAPY
     Dosage: UNKNOWN
     Route: 065
  2. IMFINZI [Suspect]
     Active Substance: DURVALUMAB
     Indication: NON-SMALL CELL LUNG CANCER
     Dosage: UNKNOWN
     Route: 042

REACTIONS (1)
  - Gastritis [Unknown]
